FAERS Safety Report 9641052 (Version 2)
Quarter: 2013Q4

REPORT INFORMATION
  Report Type: Spontaneous
  Country: US (occurrence: US)
  Receive Date: 20131023
  Receipt Date: 20131202
  Transmission Date: 20140711
  Serious: Yes (Disabling)
  Sender: FDA-Public Use
  Company Number: US-009507513-1310USA004658

PATIENT
  Age: 52 Year
  Sex: Female

DRUGS (1)
  1. NASONEX [Suspect]
     Indication: HYPERSENSITIVITY
     Dosage: 2 SPRAYS
     Route: 045
     Dates: start: 201301, end: 201304

REACTIONS (1)
  - Macular oedema [Not Recovered/Not Resolved]
